FAERS Safety Report 15406039 (Version 1)
Quarter: 2018Q3

REPORT INFORMATION
  Report Type: Spontaneous
  Country: US (occurrence: US)
  Receive Date: 20180920
  Receipt Date: 20180920
  Transmission Date: 20181010
  Serious: No
  Sender: FDA-Public Use
  Company Number: US-PFIZER INC-2018376810

PATIENT
  Sex: Male

DRUGS (2)
  1. CRIZOTINIB [Suspect]
     Active Substance: CRIZOTINIB
     Indication: NEOPLASM MALIGNANT
     Dosage: UNK
  2. R?CINEX [Interacting]
     Active Substance: ISONIAZID\RIFAMPIN
     Dosage: UNK

REACTIONS (2)
  - Nausea [Unknown]
  - Drug interaction [Unknown]
